FAERS Safety Report 4519052-3 (Version None)
Quarter: 2004Q4

REPORT INFORMATION
  Report Type: 
  Country: None (occurrence: None)
  Receive Date: 20041201
  Receipt Date: 20041115
  Transmission Date: 20050328
  Serious: Yes (Hospitalization, Congenital Anomaly)
  Sender: FDA-Public Use
  Company Number: S04-FRA-07819-02

PATIENT
  Sex: Male

DRUGS (9)
  1. SEROPLEX (ESCITALOPRAM) [Suspect]
  2. CITALOPRAM HYDROBROMIDE [Suspect]
     Dosage: 20 MG QD TRANSPLACENTAL
     Route: 064
  3. METOPROLOL TARTRATE [Suspect]
     Dosage: 200 MG QD TRANSPLACENTAL
     Route: 064
  4. STAGID (METFORMIN EMBONATE) [Suspect]
  5. MEDIATOR (BENFLUOREX HYDROCHLORIDE) [Suspect]
     Dosage: 150 MG QD TRANSPLACENTAL
     Route: 064
  6. SPIRONOLACTONE [Suspect]
     Dosage: 50 MG QD TRANSPLACENTAL
     Route: 064
  7. TRANXENE [Suspect]
  8. ZOLPIDEM TARTRATE [Suspect]
  9. LYSANXIA  (PRAZEPAM) [Suspect]

REACTIONS (2)
  - CATARACT CONGENITAL [None]
  - DRUG EXPOSURE DURING PREGNANCY [None]
